FAERS Safety Report 18628386 (Version 2)
Quarter: 2021Q1

REPORT INFORMATION
  Report Type: Spontaneous
  Country: ES (occurrence: ES)
  Receive Date: 20201217
  Receipt Date: 20210127
  Transmission Date: 20210419
  Serious: Yes (Other)
  Sender: FDA-Public Use
  Company Number: ES-PFIZER INC-2020498565

PATIENT
  Age: 75 Year
  Sex: Male

DRUGS (1)
  1. VYNDAQEL [Suspect]
     Active Substance: TAFAMIDIS MEGLUMINE
     Indication: HEREDITARY NEUROPATHIC AMYLOIDOSIS
     Dosage: UNK
     Dates: start: 201703

REACTIONS (3)
  - Loss of personal independence in daily activities [Unknown]
  - Disease progression [Unknown]
  - Gait disturbance [Unknown]
